FAERS Safety Report 5744874-0 (Version None)
Quarter: 2008Q2

REPORT INFORMATION
  Report Type: 
  Country: None (occurrence: None)
  Receive Date: 20080516
  Receipt Date: 20080501
  Transmission Date: 20081010
  Serious: Yes (Hospitalization, Other)
  Sender: FDA-Public Use
  Company Number: WAES 06127WN00008

PATIENT
  Age: 79 Year
  Sex: Female

DRUGS (20)
  1. CANCIDAS [Suspect]
     Indication: CANDIDIASIS
     Dosage: 150 MG/DAILY IV
     Route: 042
     Dates: start: 20061123, end: 20061216
  2. ATROVENT [Concomitant]
  3. AZACTAM [Concomitant]
  4. BRICANYL [Concomitant]
  5. CIPROFLOXACIN HCL [Concomitant]
  6. DIFLUCAN [Concomitant]
  7. FENTANYL ORALET [Concomitant]
  8. FORTUM [Concomitant]
  9. FAMOTIDINE [Concomitant]
  10. NORVASC [Concomitant]
  11. ACETAMINOPHEN [Concomitant]
  12. PERDIPINE [Concomitant]
  13. PROZAC [Concomitant]
  14. SEPTRIN [Concomitant]
  15. SOLU-MEDROL [Concomitant]
  16. TAZOCIN [Concomitant]
  17. ANTIMICROBIAL (UNSPECIFIED) [Concomitant]
  18. METRONIDAZOLE HCL [Concomitant]
  19. TRANEXAMIC ACID [Concomitant]
  20. VANCOMYCIN [Concomitant]

REACTIONS (13)
  - ASCITES [None]
  - ASPARTATE AMINOTRANSFERASE INCREASED [None]
  - BLOOD ALKALINE PHOSPHATASE INCREASED [None]
  - BLOOD GLUCOSE DECREASED [None]
  - ENTEROCOCCAL BACTERAEMIA [None]
  - HEPATIC FUNCTION ABNORMAL [None]
  - HYPERBILIRUBINAEMIA [None]
  - JAUNDICE [None]
  - PERITONITIS [None]
  - PLEURAL EFFUSION [None]
  - PYREXIA [None]
  - STAPHYLOCOCCAL INFECTION [None]
  - STENOTROPHOMONAS INFECTION [None]
